FAERS Safety Report 5465734-9 (Version None)
Quarter: 2007Q3

REPORT INFORMATION
  Report Type: 
  Country: None (occurrence: None)
  Receive Date: 20070919
  Receipt Date: 20070919
  Transmission Date: 20080115
  Serious: No
  Sender: FDA-Public Use
  Company Number: None

PATIENT
  Sex: Female

DRUGS (2)
  1. LUNESTA [Suspect]
     Indication: INSOMNIA
     Dosage: TAKE 1 TABLET BY MOUTH AT BEDTIME
     Route: 048
     Dates: start: 20070611
  2. LUNESTA [Suspect]
     Indication: INSOMNIA
     Dosage: TAKE 1 TABLET BY MOUTH AT BEDTIME
     Route: 048
     Dates: start: 20070612

REACTIONS (3)
  - DYSPNOEA [None]
  - MUSCLE SPASMS [None]
  - PHARMACEUTICAL PRODUCT COMPLAINT [None]
